FAERS Safety Report 7544438-2 (Version None)
Quarter: 2011Q2

REPORT INFORMATION
  Report Type: 
  Country: None (occurrence: None)
  Receive Date: 20110613
  Receipt Date: 20090615
  Transmission Date: 20111010
  Serious: Yes (Death, Disabling, Other)
  Sender: FDA-Public Use
  Company Number: PHHY2008JP33116

PATIENT
  Sex: Female

DRUGS (1)
  1. VALSARTAN [Suspect]
     Indication: HYPERTENSION
     Dosage: 80 MG, QD
     Route: 048
     Dates: start: 20071105

REACTIONS (8)
  - ACUTE PRERENAL FAILURE [None]
  - BLOOD CREATININE INCREASED [None]
  - BLOOD GLUCOSE INCREASED [None]
  - PROTEIN URINE PRESENT [None]
  - CONCOMITANT DISEASE AGGRAVATED [None]
  - BLOOD UREA INCREASED [None]
  - DEHYDRATION [None]
  - HEPATIC CIRRHOSIS [None]
